FAERS Safety Report 18285238 (Version 2)
Quarter: 2020Q3

REPORT INFORMATION
  Report Type: Spontaneous
  Country: JP (occurrence: JP)
  Receive Date: 20200918
  Receipt Date: 20200925
  Transmission Date: 20201103
  Serious: Yes (Hospitalization)
  Sender: FDA-Public Use
  Company Number: JP-ABBVIE-20P-087-3572180-00

PATIENT
  Sex: Female

DRUGS (1)
  1. LEUPLIN [Suspect]
     Active Substance: LEUPROLIDE ACETATE
     Indication: ADENOMYOSIS
     Dosage: 1.88 MILLIGRAM, Q4WEEKS
     Route: 050

REACTIONS (4)
  - Nausea [Recovered/Resolved]
  - Off label use [Unknown]
  - Abdominal pain lower [Recovered/Resolved]
  - Vomiting [Recovered/Resolved]
